FAERS Safety Report 9424582 (Version 1)
Quarter: 2013Q3

REPORT INFORMATION
  Report Type: Spontaneous
  Country: BR (occurrence: BR)
  Receive Date: 20130729
  Receipt Date: 20130729
  Transmission Date: 20140515
  Serious: Yes (Disabling, Other)
  Sender: FDA-Public Use
  Company Number: BR-SANOFI-AVENTIS-2013SA073815

PATIENT
  Age: 55 Year
  Sex: Female
  Weight: 73 kg

DRUGS (5)
  1. LANTUS [Suspect]
     Indication: TYPE 1 DIABETES MELLITUS
     Route: 058
  2. PURAN T4 [Concomitant]
     Route: 048
     Dates: start: 2005
  3. LOSARTAN POTASSIUM [Concomitant]
     Indication: BLOOD PRESSURE ABNORMAL
     Route: 048
     Dates: start: 2005
  4. JANUMET [Concomitant]
     Indication: TYPE 1 DIABETES MELLITUS
     Route: 048
     Dates: start: 2010
  5. HUMALOG [Concomitant]
     Indication: TYPE 1 DIABETES MELLITUS
     Dosage: DOSE: IU QD (ACCORDING TO GLUCOSE LEVEL)
     Route: 058

REACTIONS (4)
  - Cerebrovascular accident [Recovered/Resolved with Sequelae]
  - Speech disorder [Recovering/Resolving]
  - Hemiparesis [Recovering/Resolving]
  - Hypothyroidism [Unknown]
